FAERS Safety Report 6849753-3 (Version None)
Quarter: 2010Q3

REPORT INFORMATION
  Report Type: 
  Country: None (occurrence: None)
  Receive Date: 20100716
  Receipt Date: 20071130
  Transmission Date: 20110219
  Serious: Yes (Other)
  Sender: FDA-Public Use
  Company Number: US-PFIZER INC-2007083870

PATIENT
  Sex: Female
  Weight: 68.9 kg

DRUGS (4)
  1. CHANTIX [Suspect]
     Indication: SMOKING CESSATION THERAPY
     Dates: start: 20070601
  2. CODEINE [Concomitant]
  3. MOTRIN [Concomitant]
  4. FIORINAL [Concomitant]

REACTIONS (3)
  - DIABETES MELLITUS [None]
  - NAUSEA [None]
  - TREMOR [None]
